FAERS Safety Report 4987960-5 (Version None)
Quarter: 2006Q2

REPORT INFORMATION
  Report Type: 
  Country: None (occurrence: None)
  Receive Date: 20060424
  Receipt Date: 20060406
  Transmission Date: 20061013
  Serious: Yes (Hospitalization)
  Sender: FDA-Public Use
  Company Number: DE-2006-008210

PATIENT
  Sex: Male

DRUGS (2)
  1. BETAFERON [Suspect]
     Dosage: SUBCUTANEOUS
     Route: 058
     Dates: start: 20011201, end: 20051201
  2. CORTISONE ACETATE [Concomitant]

REACTIONS (1)
  - CELLULITIS [None]
